FAERS Safety Report 24837282 (Version 1)
Quarter: 2025Q1

REPORT INFORMATION
  Report Type: Spontaneous
  Country: CA (occurrence: CA)
  Receive Date: 20250113
  Receipt Date: 20250113
  Transmission Date: 20250408
  Serious: Yes (Other)
  Sender: PFIZER
  Company Number: CA-PFIZER INC-202400226801

PATIENT
  Age: 62 Year
  Sex: Female

DRUGS (3)
  1. RUXIENCE [Suspect]
     Active Substance: RITUXIMAB-PVVR
     Indication: Granulomatosis with polyangiitis
     Route: 042
     Dates: start: 20240815
  2. RUXIENCE [Suspect]
     Active Substance: RITUXIMAB-PVVR
     Route: 042
     Dates: start: 20240830
  3. MYELOPEROXIDASE [Concomitant]
     Active Substance: MYELOPEROXIDASE
     Indication: Antineutrophil cytoplasmic antibody

REACTIONS (4)
  - Laryngeal stenosis [Unknown]
  - Pulmonary cavitation [Unknown]
  - Bronchial disorder [Unknown]
  - Off label use [Unknown]
